FAERS Safety Report 19029160 (Version 2)
Quarter: 2025Q2

REPORT INFORMATION
  Report Type: Report from Study
  Country: IT (occurrence: IT)
  Receive Date: 20210319
  Receipt Date: 20250627
  Transmission Date: 20250716
  Serious: Yes (Other)
  Sender: AUROBINDO
  Company Number: IT-UCBSA-2021003112

PATIENT
  Age: 21 Year
  Sex: Male

DRUGS (1)
  1. LEVETIRACETAM [Suspect]
     Active Substance: LEVETIRACETAM
     Indication: Juvenile myoclonic epilepsy
     Route: 065

REACTIONS (2)
  - Generalised tonic-clonic seizure [Unknown]
  - Therapeutic product effect incomplete [Unknown]
